FAERS Safety Report 9918280 (Version 3)
Quarter: 2014Q1

REPORT INFORMATION
  Report Type: Report from Study
  Country: CA (occurrence: CA)
  Receive Date: 20140224
  Receipt Date: 20140305
  Transmission Date: 20141002
  Serious: Yes (Death)
  Sender: FDA-Public Use
  Company Number: CA-ROCHE-1316899

PATIENT
  Sex: Female

DRUGS (8)
  1. HERCEPTIN [Suspect]
     Indication: BREAST CANCER
     Route: 042
     Dates: start: 200511
  2. HERCEPTIN [Suspect]
     Route: 065
     Dates: start: 200904
  3. KADCYLA [Suspect]
     Indication: BREAST CANCER METASTATIC
     Route: 042
     Dates: start: 20131218, end: 20140131
  4. GEMCITABINE [Concomitant]
     Route: 065
     Dates: start: 201306
  5. DOCETAXEL [Concomitant]
     Route: 065
     Dates: start: 200602, end: 200604
  6. TAMOXIFEN [Concomitant]
     Route: 065
     Dates: start: 200707, end: 200805
  7. ELTROXIN [Concomitant]
  8. PAMIDRONATE [Concomitant]

REACTIONS (1)
  - Malignant neoplasm progression [Fatal]
